FAERS Safety Report 9919538 (Version 1)
Quarter: 2014Q1

REPORT INFORMATION
  Report Type: Spontaneous
  Country: IT (occurrence: IT)
  Receive Date: 20140224
  Receipt Date: 20140224
  Transmission Date: 20141002
  Serious: Yes (Other)
  Sender: FDA-Public Use
  Company Number: IT-TEVA-463577ISR

PATIENT
  Age: 68 Year
  Sex: Female

DRUGS (2)
  1. PACLITAXEL TEVA ITALIA [Suspect]
     Indication: BREAST CANCER METASTATIC
     Dosage: 150 MILLIGRAM DAILY; CONCENTRATE FOR SOLUTION FOR INFUSION
     Dates: start: 20130927
  2. AVASTIN [Suspect]
     Indication: BREAST CANCER METASTATIC
     Dosage: 600 MILLIGRAM DAILY;
     Route: 042
     Dates: start: 20130927

REACTIONS (4)
  - Hypertension [Recovered/Resolved]
  - Headache [Recovered/Resolved]
  - Pain [Recovered/Resolved]
  - Tachycardia [Recovered/Resolved]
